FAERS Safety Report 4572650-3 (Version None)
Quarter: 2005Q1

REPORT INFORMATION
  Report Type: 
  Country: None (occurrence: None)
  Receive Date: 20050208
  Receipt Date: 20041105
  Transmission Date: 20050727
  Serious: No
  Sender: FDA-Public Use
  Company Number: US-GLAXOSMITHKLINE-A0532859A

PATIENT
  Sex: Male

DRUGS (2)
  1. PAXIL CR [Suspect]
     Indication: ILL-DEFINED DISORDER
     Route: 048
  2. WELLBUTRIN [Concomitant]

REACTIONS (4)
  - BLOOD TESTOSTERONE DECREASED [None]
  - EJACULATION DELAYED [None]
  - ERECTILE DYSFUNCTION [None]
  - TESTICULAR DISORDER [None]
